FAERS Safety Report 17584828 (Version 1)
Quarter: 2020Q1

REPORT INFORMATION
  Report Type: Spontaneous
  Country: US (occurrence: US)
  Receive Date: 20200326
  Receipt Date: 20200326
  Transmission Date: 20200409
  Serious: Yes (Death, Other)
  Sender: FDA-Public Use
  Company Number: US-PFIZER INC-2020125995

PATIENT
  Age: 87 Year
  Sex: Male
  Weight: 69.85 kg

DRUGS (1)
  1. VYNDAQEL [Suspect]
     Active Substance: TAFAMIDIS MEGLUMINE
     Indication: CARDIAC DISORDER
     Dosage: 80 MG, 1X/DAY, (20MG, 4 CAPSULES BY MOUTH AT ONE TIME)
     Route: 048

REACTIONS (3)
  - Renal disorder [Unknown]
  - Cardiac failure congestive [Fatal]
  - Cardiac arrest [Fatal]

NARRATIVE: CASE EVENT DATE: 20200229
